FAERS Safety Report 10221332 (Version 1)
Quarter: 2014Q2

REPORT INFORMATION
  Report Type: Spontaneous
  Country: US (occurrence: US)
  Receive Date: 20140606
  Receipt Date: 20140606
  Transmission Date: 20141212
  Serious: No
  Sender: FDA-Public Use
  Company Number: US-GLAXOSMITHKLINE-A1072639A

PATIENT
  Age: 79 Year
  Sex: Female

DRUGS (6)
  1. BREO ELLIPTA [Suspect]
     Indication: CHRONIC OBSTRUCTIVE PULMONARY DISEASE
     Dosage: 1PUFF PER DAY
     Route: 055
     Dates: start: 20140507
  2. LOVASTATIN [Concomitant]
  3. CALCIUM [Concomitant]
  4. VITAMIN D [Concomitant]
  5. VENTOLIN [Concomitant]
  6. MULTIVITAMIN [Concomitant]

REACTIONS (2)
  - Oropharyngeal discomfort [Not Recovered/Not Resolved]
  - Oral candidiasis [Unknown]
